FAERS Safety Report 4909366-7 (Version None)
Quarter: 2006Q1

REPORT INFORMATION
  Report Type: 
  Country: None (occurrence: None)
  Receive Date: 20060213
  Receipt Date: 20060206
  Transmission Date: 20060701
  Serious: Yes (Disabling)
  Sender: FDA-Public Use
  Company Number: JP-JPN-A200600487

PATIENT
  Age: 90 Year
  Sex: Male
  Weight: 58 kg

DRUGS (5)
  1. VALTREX [Suspect]
     Indication: HERPES ZOSTER
     Dosage: 1000MG THREE TIMES PER DAY
     Route: 048
     Dates: start: 20051024, end: 20051028
  2. ADALAT [Concomitant]
     Indication: ANGINA PECTORIS
     Dosage: 10MG THREE TIMES PER DAY
     Route: 048
     Dates: start: 19891002
  3. SIGMART [Concomitant]
     Indication: ANGINA PECTORIS
     Dosage: 5MG THREE TIMES PER DAY
     Route: 048
     Dates: start: 19891002
  4. ROCORNAL [Concomitant]
     Indication: ANGINA PECTORIS
     Dosage: 100MG THREE TIMES PER DAY
     Route: 048
     Dates: start: 19891002
  5. HALCION [Concomitant]
     Indication: INSOMNIA
     Dosage: .25MG PER DAY
     Route: 048
     Dates: start: 19961206

REACTIONS (4)
  - DEMENTIA [None]
  - DYSGRAPHIA [None]
  - ILL-DEFINED DISORDER [None]
  - SPEECH DISORDER [None]
